FAERS Safety Report 10218848 (Version 1)
Quarter: 2014Q2

REPORT INFORMATION
  Report Type: Spontaneous
  Country: US (occurrence: US)
  Receive Date: 20140605
  Receipt Date: 20140605
  Transmission Date: 20141212
  Serious: No
  Sender: FDA-Public Use
  Company Number: US-009507513-1405USA009023

PATIENT
  Age: 75 Year
  Sex: Female

DRUGS (1)
  1. NASONEX [Suspect]
     Indication: SINUSITIS
     Dosage: TWO SPRAYS IN EACH NOSTRIL, ONCE DAILY
     Route: 045
     Dates: start: 20140515

REACTIONS (4)
  - Drug ineffective for unapproved indication [Unknown]
  - Off label use [Unknown]
  - Drug dose omission [Unknown]
  - Product quality issue [Unknown]
